FAERS Safety Report 20759835 (Version 1)
Quarter: 2022Q2

REPORT INFORMATION
  Report Type: Report from Study
  Country: FR (occurrence: None)
  Receive Date: 20220427
  Receipt Date: 20220427
  Transmission Date: 20220721
  Serious: Yes (Hospitalization)
  Sender: FDA-Public Use
  Company Number: FR-ROCHE-2997277

PATIENT
  Age: 44 Year
  Sex: Male
  Weight: 71 kg

DRUGS (34)
  1. OCRELIZUMAB [Suspect]
     Active Substance: OCRELIZUMAB
     Indication: Progressive multiple sclerosis
     Dosage: AT AN INITIAL DOSE OF TWO 300-MG INFUSIONS SEPARATED BY 14 DAYS (ON DAYS 1 AND 15), AND THEN 600 MG
     Route: 042
     Dates: start: 20190111
  2. BACLOFEN [Concomitant]
     Active Substance: BACLOFEN
     Route: 048
  3. ALFUZOSIN HYDROCHLORIDE [Concomitant]
     Active Substance: ALFUZOSIN HYDROCHLORIDE
     Route: 048
     Dates: start: 20170608
  4. OXYBUTYNIN CHLORIDE [Concomitant]
     Active Substance: OXYBUTYNIN CHLORIDE
     Route: 048
     Dates: start: 2011, end: 20201203
  5. FLUOXETINE [Concomitant]
     Active Substance: FLUOXETINE HYDROCHLORIDE
     Route: 048
  6. ECONAZOLE [Concomitant]
     Active Substance: ECONAZOLE
     Indication: Multiple sclerosis relapse
     Route: 048
     Dates: start: 20200520
  7. PROPOFOL [Concomitant]
     Active Substance: PROPOFOL
     Indication: Multiple sclerosis relapse
     Route: 042
     Dates: start: 20201008, end: 20201008
  8. DEXAMETHASONE [Concomitant]
     Active Substance: DEXAMETHASONE
     Indication: Multiple sclerosis relapse
     Route: 042
     Dates: start: 20201008, end: 20201008
  9. SUFENTANIL [Concomitant]
     Active Substance: SUFENTANIL
     Indication: Multiple sclerosis relapse
     Route: 042
     Dates: start: 20201008, end: 20201008
  10. AUGMENTIN [Concomitant]
     Active Substance: AMOXICILLIN\CLAVULANATE POTASSIUM
     Indication: Multiple sclerosis relapse
     Route: 042
     Dates: start: 20201008, end: 20201008
  11. AUGMENTIN [Concomitant]
     Active Substance: AMOXICILLIN\CLAVULANATE POTASSIUM
     Route: 048
     Dates: start: 20201009, end: 20201014
  12. KETAMINE [Concomitant]
     Active Substance: KETAMINE
     Indication: Multiple sclerosis relapse
     Route: 042
     Dates: start: 20201008, end: 20201008
  13. LIDOCAINE [Concomitant]
     Active Substance: LIDOCAINE
     Indication: Multiple sclerosis relapse
     Route: 042
  14. CEFTRIAXONE SODIUM [Concomitant]
     Active Substance: CEFTRIAXONE SODIUM
     Indication: Multiple sclerosis relapse
     Route: 042
     Dates: start: 20201008, end: 20201009
  15. CEFTRIAXONE SODIUM [Concomitant]
     Active Substance: CEFTRIAXONE SODIUM
     Route: 042
     Dates: start: 20220114, end: 20220122
  16. ACUPAN [Concomitant]
     Active Substance: NEFOPAM HYDROCHLORIDE
     Indication: Multiple sclerosis relapse
     Route: 048
     Dates: start: 20201008, end: 20201009
  17. ACETAMINOPHEN [Concomitant]
     Active Substance: ACETAMINOPHEN
     Indication: Multiple sclerosis relapse
     Route: 048
     Dates: start: 20201008, end: 20201014
  18. ACETAMINOPHEN [Concomitant]
     Active Substance: ACETAMINOPHEN
     Dates: start: 20220323
  19. ENOXAPARIN SODIUM [Concomitant]
     Active Substance: ENOXAPARIN SODIUM
     Indication: Multiple sclerosis relapse
     Route: 058
     Dates: start: 20201009, end: 20201014
  20. PANTOPRAZOLE [Concomitant]
     Active Substance: PANTOPRAZOLE
     Indication: Multiple sclerosis relapse
     Route: 048
     Dates: start: 20201009, end: 20201014
  21. IBUPROFEN [Concomitant]
     Active Substance: IBUPROFEN
     Indication: Multiple sclerosis relapse
     Route: 048
     Dates: start: 20201009
  22. TRAMADOL [Concomitant]
     Active Substance: TRAMADOL
     Indication: Multiple sclerosis relapse
     Route: 048
     Dates: start: 20201009, end: 20201014
  23. ONDANSETRON [Concomitant]
     Active Substance: ONDANSETRON
     Indication: Multiple sclerosis relapse
     Route: 048
     Dates: start: 20201009, end: 20201014
  24. TOVIAZ [Concomitant]
     Active Substance: FESOTERODINE FUMARATE
     Indication: Multiple sclerosis relapse
     Route: 048
     Dates: start: 20201203
  25. PFIZER-BIONTECH COVID-19 VACCINE [Concomitant]
     Active Substance: TOZINAMERAN
     Indication: Prophylaxis
     Route: 030
     Dates: start: 20210315, end: 20210315
  26. PFIZER-BIONTECH COVID-19 VACCINE [Concomitant]
     Active Substance: TOZINAMERAN
     Route: 030
     Dates: start: 20210412, end: 20210412
  27. PFIZER-BIONTECH COVID-19 VACCINE [Concomitant]
     Active Substance: TOZINAMERAN
     Route: 030
     Dates: start: 20211025, end: 20211025
  28. METHYLPREDNISOLONE [Concomitant]
     Active Substance: METHYLPREDNISOLONE
     Dosage: 25 /JAN /2019, 02 /JUL /2019, 03/DEC /2019, 16/JUN/2020, 15/DEC/2020, 25/MAY/2021, 08/NOV/2021
     Route: 042
     Dates: start: 20190111, end: 20190111
  29. DEXCHLORPHENIRAMINE [Concomitant]
     Active Substance: DEXCHLORPHENIRAMINE
     Dosage: 25/JAN/2019
     Route: 042
     Dates: start: 20190111, end: 20190111
  30. POLARAMINE [Concomitant]
     Active Substance: DEXCHLORPHENIRAMINE MALEATE
     Dosage: 03/DEC /2019, 16/JUN/2020, 15/DEC/2020,
     Route: 042
     Dates: start: 20191202, end: 20191202
  31. CETIRIZINE [Concomitant]
     Active Substance: CETIRIZINE HYDROCHLORIDE
  32. ACETAMINOPHEN [Concomitant]
     Active Substance: ACETAMINOPHEN
     Dosage: 25/JAN/2019, 02/JUL/2019,03/DEC/2019, 16/JUN/2020, 15/DEC/2020, 25/MAY/2021, 08/NOV/2021
     Route: 048
     Dates: start: 20190111, end: 20190111
  33. CEFTRIAXONE [Concomitant]
     Active Substance: CEFTRIAXONE
     Indication: Urinary tract infection
     Dates: start: 20220114
  34. VESICARE [Concomitant]
     Active Substance: SOLIFENACIN SUCCINATE
     Dates: start: 20220406

REACTIONS (2)
  - Neurological decompensation [Recovered/Resolved with Sequelae]
  - COVID-19 pneumonia [Recovered/Resolved]

NARRATIVE: CASE EVENT DATE: 20211231
